FAERS Safety Report 10053069 (Version 1)
Quarter: 2014Q2

REPORT INFORMATION
  Report Type: Report from Study
  Country: DE (occurrence: DE)
  Receive Date: 20140402
  Receipt Date: 20140402
  Transmission Date: 20141212
  Serious: Yes (Other)
  Sender: FDA-Public Use
  Company Number: DE-ABBVIE-14K-062-1217080-00

PATIENT
  Age: 36 Year
  Sex: Male

DRUGS (4)
  1. KALETRA [Suspect]
     Indication: HIV INFECTION
     Dates: start: 20020729
  2. EPIVIR [Concomitant]
     Indication: PRODUCT USED FOR UNKNOWN INDICATION
  3. VIREAD [Concomitant]
     Indication: PRODUCT USED FOR UNKNOWN INDICATION
  4. FUZEON [Concomitant]
     Indication: PRODUCT USED FOR UNKNOWN INDICATION

REACTIONS (2)
  - Progressive multifocal leukoencephalopathy [Not Recovered/Not Resolved]
  - Speech disorder [Not Recovered/Not Resolved]
